FAERS Safety Report 7994214-1 (Version None)
Quarter: 2011Q4

REPORT INFORMATION
  Report Type: 
  Country: None (occurrence: None)
  Receive Date: 20111220
  Receipt Date: 20111213
  Transmission Date: 20120403
  Serious: Yes (Other)
  Sender: FDA-Public Use
  Company Number: US-BRISTOL-MYERS SQUIBB COMPANY-15988199

PATIENT
  Age: 83 Year
  Sex: Female
  Weight: 47 kg

DRUGS (2)
  1. IPILIMUMAB [Suspect]
     Indication: MALIGNANT MELANOMA
     Dosage: LAST DOSE 13MAY2011. DOSE:10 MG/KG IV OVER 90 MIN CYCL 1=4 Q 21 DAYS, CYCL 5+=Q 12 WKS. COURSES: 4
     Route: 042
     Dates: start: 20110513
  2. NEUPOGEN [Suspect]
     Indication: MALIGNANT MELANOMA
     Dosage: 250 MCG/DAY SQ ON DAYS 1-14.LAST DOSE ON 26MAY2011. COURSES: 4
     Route: 058
     Dates: start: 20110513

REACTIONS (2)
  - RASH MACULO-PAPULAR [None]
  - NEUTROPHIL COUNT DECREASED [None]
